FAERS Safety Report 7524488-2 (Version None)
Quarter: 2011Q2

REPORT INFORMATION
  Report Type: 
  Country: None (occurrence: None)
  Receive Date: 20110606
  Receipt Date: 20110504
  Transmission Date: 20111010
  Serious: Yes (Other)
  Sender: FDA-Public Use
  Company Number: US-BAYER-2011-023755

PATIENT
  Age: 25 Year
  Sex: Female
  Weight: 52.154 kg

DRUGS (20)
  1. ZOFRAN [Concomitant]
  2. LEVAQUIN [Concomitant]
  3. ALEVE (CAPLET) [Concomitant]
  4. YAZ [Suspect]
     Indication: ORAL CONTRACEPTION
     Dosage: 1 TAB/DAY
     Dates: start: 20070215, end: 20090909
  5. I.V. SOLUTIONS [Concomitant]
     Route: 042
  6. VALTREX [Concomitant]
     Dosage: 500 MG, UNK
     Route: 048
  7. EXCEDRIN (MIGRAINE) [Concomitant]
     Dosage: DAILY
  8. HYDROCODONE BITARTRATE [Concomitant]
     Indication: PAIN IN EXTREMITY
     Dosage: 7.5/500 ONE TAB EVERY EIGHT HOURS
  9. YASMIN [Suspect]
     Indication: ORAL CONTRACEPTION
     Dosage: 1 TAB/DAY
     Dates: start: 20090114, end: 20090306
  10. AZITHROMYCIN [Concomitant]
     Dosage: 250 MG, UNK
     Route: 048
  11. METHYLPREDNISOLONE [Concomitant]
     Dosage: 4 MG, UNK
     Route: 048
  12. PROAIR HFA [Concomitant]
     Indication: COUGH
     Dosage: 2 PUFF(S), QID INHALER
     Route: 055
  13. CARAFATE [Concomitant]
     Indication: GASTRIC DISORDER
     Dosage: 1 G QID BEFORE MEALS
     Route: 048
  14. PEPCID [Concomitant]
     Indication: GASTRIC DISORDER
  15. VICODIN [Concomitant]
  16. MORPHINE [Concomitant]
     Route: 042
  17. CLONAZEPAM [Concomitant]
     Dosage: 1 MG, TID
  18. NASACORT AQ [Concomitant]
     Dosage: 55MCG TWO SPRAYS ONCE A DAY
     Route: 055
  19. PROTONIX [Concomitant]
     Dosage: 40 MG, UNK
  20. IMITREX [Concomitant]
     Indication: MIGRAINE
     Dosage: 50 MG, PRN

REACTIONS (3)
  - CHOLECYSTECTOMY [None]
  - CHOLECYSTITIS [None]
  - INJURY [None]
